FAERS Safety Report 25752600 (Version 5)
Quarter: 2025Q4

REPORT INFORMATION
  Report Type: Report from Study
  Country: BR (occurrence: BR)
  Receive Date: 20250902
  Receipt Date: 20251210
  Transmission Date: 20260117
  Serious: Yes (Hospitalization, Other)
  Sender: JOHNSON AND JOHNSON
  Company Number: BR-JNJFOC-20250515530

PATIENT
  Age: 51 Year
  Sex: Male
  Weight: 102 kg

DRUGS (3)
  1. TALVEY [Suspect]
     Active Substance: TALQUETAMAB-TGVS
     Indication: Plasma cell myeloma
     Dosage: LAST APPLICATION DATE: 5/MAY/2025
     Route: 058
     Dates: start: 20250417
  2. TALVEY [Suspect]
     Active Substance: TALQUETAMAB-TGVS
     Route: 058
     Dates: start: 20250420
  3. TALVEY [Suspect]
     Active Substance: TALQUETAMAB-TGVS
     Dosage: LAST ADMINISTERED ON 04-SEP-2025, LAST ADMINISTRATION: 25-NOV-2025, NEXT ADMINISTRATION: 12-DEC-2025
     Route: 058

REACTIONS (21)
  - Bone marrow harvest [Unknown]
  - Pyrexia [Recovered/Resolved]
  - Nail disorder [Not Recovered/Not Resolved]
  - Weight decreased [Recovering/Resolving]
  - Skin exfoliation [Recovering/Resolving]
  - Ageusia [Not Recovered/Not Resolved]
  - Taste disorder [Not Recovered/Not Resolved]
  - Dry mouth [Not Recovered/Not Resolved]
  - Salivary hypersecretion [Not Recovered/Not Resolved]
  - Onychomadesis [Recovering/Resolving]
  - Alopecia [Recovered/Resolved]
  - Dry skin [Recovered/Resolved]
  - Eating disorder [Not Recovered/Not Resolved]
  - Product storage error [Unknown]
  - Nausea [Not Recovered/Not Resolved]
  - Dry throat [Not Recovered/Not Resolved]
  - Sensitive skin [Not Recovered/Not Resolved]
  - Skin atrophy [Not Recovered/Not Resolved]
  - Paraesthesia [Not Recovered/Not Resolved]
  - Skin exfoliation [Recovered/Resolved]
  - Insomnia [Not Recovered/Not Resolved]

NARRATIVE: CASE EVENT DATE: 20250101
